FAERS Safety Report 18966057 (Version 2)
Quarter: 2021Q3

REPORT INFORMATION
  Report Type: Spontaneous
  Country: US (occurrence: US)
  Receive Date: 20210303
  Receipt Date: 20210811
  Transmission Date: 20211014
  Serious: Yes (Other)
  Sender: FDA-Public Use
  Company Number: US-PFIZER INC-2021215940

PATIENT
  Age: 37 Year
  Sex: Female

DRUGS (1)
  1. XELJANZ [Suspect]
     Active Substance: TOFACITINIB CITRATE
     Dosage: UNK

REACTIONS (5)
  - Clostridium difficile colitis [Unknown]
  - Post procedural complication [Unknown]
  - Hyposplenism [Unknown]
  - Sepsis [Unknown]
  - Septic embolus [Unknown]

NARRATIVE: CASE EVENT DATE: 201611
